FAERS Safety Report 14294135 (Version 2)
Quarter: 2020Q4

REPORT INFORMATION
  Report Type: Spontaneous
  Country: OM (occurrence: OM)
  Receive Date: 20171217
  Receipt Date: 20201201
  Transmission Date: 20210113
  Serious: Yes (Other)
  Sender: FDA-Public Use
  Company Number: OM-AMGEN-OMNSP2017184955

PATIENT
  Age: 9 Year
  Sex: Male

DRUGS (5)
  1. DEFERASIROX. [Concomitant]
     Active Substance: DEFERASIROX
     Indication: CHELATION THERAPY
     Dosage: UNK
  2. VANCOMYCIN [Concomitant]
     Active Substance: VANCOMYCIN
     Indication: PRODUCT USED FOR UNKNOWN INDICATION
     Dosage: UNK
     Dates: start: 201612
  3. DEFERASIROX. [Concomitant]
     Active Substance: DEFERASIROX
     Dosage: 25 MILLIGRAM/KILOGRAM, QD
     Dates: start: 201612
  4. FILGRASTIM [Suspect]
     Active Substance: FILGRASTIM
     Indication: AGRANULOCYTOSIS
     Dosage: 10 MICROGRAM/KILOGRAM, QD
     Route: 065
     Dates: start: 201612
  5. TAZOCIN [Concomitant]
     Active Substance: PIPERACILLIN SODIUM\TAZOBACTAM SODIUM
     Indication: PRODUCT USED FOR UNKNOWN INDICATION
     Dosage: UNK
     Dates: start: 201612

REACTIONS (5)
  - Arrhythmia [Recovered/Resolved]
  - Cellulitis [Unknown]
  - Ventricular extrasystoles [Recovered/Resolved]
  - Off label use [Unknown]
  - Febrile neutropenia [Unknown]

NARRATIVE: CASE EVENT DATE: 201612
